FAERS Safety Report 5207014-2 (Version None)
Quarter: 2007Q1

REPORT INFORMATION
  Report Type: 
  Country: None (occurrence: None)
  Receive Date: 20070112
  Receipt Date: 20061205
  Transmission Date: 20070707
  Serious: Yes (Death, Hospitalization)
  Sender: FDA-Public Use
  Company Number: US-BAYER-200614522BWH

PATIENT
  Age: 72 Year
  Sex: Male
  Weight: 80 kg

DRUGS (7)
  1. SORAFENIB [Suspect]
     Indication: METASTATIC RENAL CELL CARCINOMA
     Dosage: TOTAL DAILY DOSE: 800 MG  UNIT DOSE: 200 MG
     Route: 048
     Dates: start: 20050830, end: 20050929
  2. AUGMENTIN '125' [Concomitant]
     Indication: PILONIDAL CYST
  3. BENADRYL [Concomitant]
     Indication: NAUSEA
     Route: 050
  4. LIPITOR [Concomitant]
  5. TOPROL-XL [Concomitant]
  6. VITAMIN CAP [Concomitant]
  7. ASPIRIN [Concomitant]

REACTIONS (3)
  - ABDOMINAL PAIN [None]
  - DIARRHOEA [None]
  - RENAL CELL CARCINOMA STAGE UNSPECIFIED [None]
